FAERS Safety Report 6801003-X (Version None)
Quarter: 2010Q2

REPORT INFORMATION
  Report Type: 
  Country: None (occurrence: None)
  Receive Date: 20100629
  Receipt Date: 20100623
  Transmission Date: 20101027
  Serious: Yes (Death)
  Sender: FDA-Public Use
  Company Number: DE-CELGENEUS-062-50794-10062493

PATIENT
  Age: 66 Year
  Sex: Male

DRUGS (5)
  1. VIDAZA [Suspect]
     Indication: MYELODYSPLASTIC SYNDROME
     Route: 058
     Dates: start: 20090801, end: 20091201
  2. THROMBOCYTE CONCENTRATES [Concomitant]
     Route: 065
  3. RED BLOOD CELLS [Concomitant]
     Dosage: CONCENTRATES
     Route: 065
  4. NEUPOGEN [Concomitant]
     Route: 065
  5. ANTIBIOTICS [Concomitant]
     Indication: ANTIBIOTIC PROPHYLAXIS
     Route: 065

REACTIONS (6)
  - ANAEMIA [None]
  - DEATH [None]
  - INFECTION [None]
  - INJECTION SITE PAIN [None]
  - NEUTROPENIA [None]
  - THROMBOCYTOPENIA [None]
